FAERS Safety Report 11748715 (Version 1)
Quarter: 2015Q4

REPORT INFORMATION
  Report Type: Spontaneous
  Country: US (occurrence: US)
  Receive Date: 20151117
  Receipt Date: 20151117
  Transmission Date: 20160304
  Serious: Yes (Hospitalization)
  Sender: FDA-Public Use
  Company Number: US-ROCHE-1662458

PATIENT
  Sex: Male
  Weight: 69.92 kg

DRUGS (1)
  1. ESBRIET [Suspect]
     Active Substance: PIRFENIDONE
     Indication: IDIOPATHIC PULMONARY FIBROSIS
     Dosage: TOTAL 2403 MG DAILY 3 CAPS PO TID
     Route: 048
     Dates: start: 20150423

REACTIONS (1)
  - Respiratory tract infection [Unknown]
